FAERS Safety Report 24455271 (Version 2)
Quarter: 2024Q4

REPORT INFORMATION
  Report Type: Report from Study
  Country: US (occurrence: US)
  Receive Date: 20241017
  Receipt Date: 20241018
  Transmission Date: 20250115
  Serious: No
  Sender: ROCHE
  Company Number: US-ROCHE-3495125

PATIENT
  Age: 79 Year
  Sex: Female
  Weight: 80.83 kg

DRUGS (11)
  1. RITUXAN [Suspect]
     Active Substance: RITUXIMAB
     Indication: Warm autoimmune haemolytic anaemia
     Dosage: STRENGTH: 640 MG?D1, 8, 15, 22 EVERY 6 MONTHS? FREQUENCY TEXT:D1, 8, 15, 22 EVERY 6 MONTHS
     Route: 065
     Dates: start: 202212
  2. ACYCLOVIR [Concomitant]
     Active Substance: ACYCLOVIR
     Dosage: 400 MG TABLET
  3. OMEPRAZOLE [Concomitant]
     Active Substance: OMEPRAZOLE
     Dosage: 40 MG CAPSULE DELAYED RELEASE
  4. ALBUTEROL SULFATE [Concomitant]
     Active Substance: ALBUTEROL SULFATE
     Dosage: 90 MCG  AEROSOL INHALER
  5. ASPIRIN [Concomitant]
     Active Substance: ASPIRIN
     Dosage: 81 MG CAPSULE
  6. FLUTICASONE [Concomitant]
     Active Substance: FLUTICASONE
     Dosage: 100 MCG
  7. FOLIC ACID [Concomitant]
     Active Substance: FOLIC ACID
     Dosage: 1 MG TABLET
  8. FUROSEMIDE [Concomitant]
     Active Substance: FUROSEMIDE
     Dosage: 20 MG TABLET
  9. LEVOTHYROXINE [Concomitant]
     Active Substance: LEVOTHYROXINE
     Dosage: 125 MCG TABLET
  10. METHYLPREDNISOLONE [Concomitant]
     Active Substance: METHYLPREDNISOLONE
     Dosage: 8 MG TABLET
  11. PREDNISONE [Concomitant]
     Active Substance: PREDNISONE
     Dosage: 10 MG TABLET

REACTIONS (3)
  - Off label use [Unknown]
  - Nausea [Unknown]
  - Diarrhoea [Unknown]
